FAERS Safety Report 24141966 (Version 2)
Quarter: 2024Q3

REPORT INFORMATION
  Report Type: Spontaneous
  Country: US (occurrence: US)
  Receive Date: 20240726
  Receipt Date: 20240822
  Transmission Date: 20241016
  Serious: No
  Sender: MYLAN
  Company Number: US-MYLANLABS-2024M1069478

PATIENT
  Sex: Male
  Weight: 71.21 kg

DRUGS (1)
  1. NITROGLYCERIN [Suspect]
     Active Substance: NITROGLYCERIN
     Indication: Chest pain
     Dosage: 3 DOSAGE FORM (ONE EVERY 5 MINUTES)
     Route: 060

REACTIONS (2)
  - Insomnia [Unknown]
  - Chest pain [Unknown]
